FAERS Safety Report 18734462 (Version 3)
Quarter: 2021Q1

REPORT INFORMATION
  Report Type: Spontaneous
  Country: FR (occurrence: FR)
  Receive Date: 20210113
  Receipt Date: 20210217
  Transmission Date: 20210419
  Serious: Yes (Death, Other)
  Sender: FDA-Public Use
  Company Number: FR-TEVA-2021-FR-1865956

PATIENT

DRUGS (4)
  1. ETRAVIRINE [Suspect]
     Active Substance: ETRAVIRINE
     Dosage: 200 MILLIGRAM, TWICE DAILY
     Route: 065
  2. RALTEGRAVIR POTASSIUM [Suspect]
     Active Substance: RALTEGRAVIR POTASSIUM
     Dosage: 400 MILLIGRAM, TWICE A DAY
     Route: 065
  3. RITONAVIR. [Suspect]
     Active Substance: RITONAVIR
     Dosage: 100 MILLIGRAM, TWICE A DAY
     Route: 065
  4. DARUNAVIR [Suspect]
     Active Substance: DARUNAVIR
     Dosage: 600 MILLIGRAM, TWICE DAILY
     Route: 065

REACTIONS (5)
  - Treatment failure [Unknown]
  - Death [Fatal]
  - CD4 lymphocytes decreased [Unknown]
  - CD4/CD8 ratio decreased [Unknown]
  - Drug resistance [Unknown]
